FAERS Safety Report 6025221-6 (Version None)
Quarter: 2008Q4

REPORT INFORMATION
  Report Type: 
  Country: None (occurrence: None)
  Receive Date: 20081224
  Receipt Date: 20081212
  Transmission Date: 20090506
  Serious: Yes (Other)
  Sender: FDA-Public Use
  Company Number: 2008SP022849

PATIENT
  Age: 58 Year
  Sex: Male
  Weight: 62 kg

DRUGS (4)
  1. PEGETRON (PEGINTERFERON ALFA-2B W/ RIBAVIRIN) (PEGYLATED INTERFERON AL [Suspect]
     Indication: HEPATITIS C
     Dosage: 100 MCG; 1000 MG; QD; PO , 80 MCG; QW; SC
     Route: 058
     Dates: start: 20081009
  2. PEGETRON (PEGINTERFERON ALFA-2B W/ RIBAVIRIN) (PEGYLATED INTERFERON AL [Suspect]
     Indication: HEPATITIS C
     Dosage: 100 MCG; 1000 MG; QD; PO , 80 MCG; QW; SC
     Route: 058
     Dates: start: 20081009
  3. PEGETRON (PEGINTERFERON ALFA-2B W/ RIBAVIRIN) (PEGYLATED INTERFERON AL [Suspect]
     Indication: HEPATITIS C
     Dosage: 100 MCG; 1000 MG; QD; PO , 80 MCG; QW; SC
     Route: 058
     Dates: start: 20081211
  4. . [Concomitant]

REACTIONS (7)
  - ANAEMIA [None]
  - ASTHENIA [None]
  - DIZZINESS [None]
  - DYSPNOEA [None]
  - NEUTROPHIL COUNT INCREASED [None]
  - PLATELET COUNT DECREASED [None]
  - WHITE BLOOD CELL COUNT DECREASED [None]
